FAERS Safety Report 6707168-2 (Version None)
Quarter: 2010Q2

REPORT INFORMATION
  Report Type: 
  Country: None (occurrence: None)
  Receive Date: 20100503
  Receipt Date: 20090306
  Transmission Date: 20101027
  Serious: No
  Sender: FDA-Public Use
  Company Number: US-ASTRAZENECA-2009UW06006

PATIENT
  Age: 55 Year
  Sex: Female
  Weight: 66.2 kg

DRUGS (3)
  1. NEXIUM [Suspect]
     Indication: ILL-DEFINED DISORDER
     Route: 048
  2. TYLENOL PM [Concomitant]
  3. VALERIAN ROOT [Concomitant]
     Indication: ANXIETY

REACTIONS (5)
  - CHEST DISCOMFORT [None]
  - DYSPEPSIA [None]
  - ERUCTATION [None]
  - FLATULENCE [None]
  - HEADACHE [None]
